FAERS Safety Report 7107066 (Version 2)
Quarter: 2016Q3

REPORT INFORMATION
  Report Type: Spontaneous
  Country: BR (occurrence: BR)
  Receive Date: 20090908
  Receipt Date: 20160721
  Transmission Date: 20161109
  Serious: Yes (Disabling, Other)
  Sender: FDA-Public Use
  Company Number: BR-ROCHE-653219

PATIENT
  Age: 17 Year
  Sex: Female

DRUGS (1)
  1. ROACUTAN [Suspect]
     Active Substance: ISOTRETINOIN
     Indication: ACNE
     Route: 065

REACTIONS (5)
  - Hypoacusis [Not Recovered/Not Resolved]
  - Neurological symptom [Not Recovered/Not Resolved]
  - Depression [Unknown]
  - Deafness [Not Recovered/Not Resolved]
  - Educational problem [Not Recovered/Not Resolved]
